FAERS Safety Report 7029296-7 (Version None)
Quarter: 2010Q3

REPORT INFORMATION
  Report Type: 
  Country: None (occurrence: None)
  Receive Date: 20100924
  Receipt Date: 20091111
  Transmission Date: 20110219
  Serious: Yes (Hospitalization)
  Sender: FDA-Public Use
  Company Number: WAES 0911USA02005

PATIENT
  Age: 90 Year
  Sex: Female

DRUGS (1)
  1. VYTORIN [Suspect]
     Dosage: PO
     Route: 048
     Dates: start: 20040101, end: 20070101

REACTIONS (5)
  - DRY MOUTH [None]
  - NEUROPATHY PERIPHERAL [None]
  - TOOTH DISORDER [None]
  - TOOTH EROSION [None]
  - TOOTH LOSS [None]
